FAERS Safety Report 7200066-X (Version None)
Quarter: 2010Q4

REPORT INFORMATION
  Report Type: 
  Country: None (occurrence: None)
  Receive Date: 20101228
  Receipt Date: 20101220
  Transmission Date: 20110411
  Serious: Yes (Other)
  Sender: FDA-Public Use
  Company Number: CA-AMGEN-CANSP2010009981

PATIENT

DRUGS (9)
  1. ENBREL [Suspect]
     Indication: PSORIASIS
     Dates: start: 20101216
  2. ASPIRIN [Concomitant]
     Dosage: 81 MG, UNK
  3. METFORMIN [Concomitant]
  4. FOLIC ACID [Concomitant]
  5. PLAQUENIL                          /00072603/ [Concomitant]
  6. CLOBETASOL [Concomitant]
     Route: 061
  7. METHOTREXATE [Concomitant]
  8. LIPITOR [Concomitant]
  9. VITAMIN B12                        /00056201/ [Concomitant]

REACTIONS (2)
  - HYPOAESTHESIA ORAL [None]
  - PARAESTHESIA [None]
